FAERS Safety Report 14516724 (Version 1)
Quarter: 2018Q1

REPORT INFORMATION
  Report Type: Spontaneous
  Country: US (occurrence: US)
  Receive Date: 20180212
  Receipt Date: 20180212
  Transmission Date: 20180509
  Serious: No
  Sender: FDA-Public Use
  Company Number: US-AMGEN-USASP2018018608

PATIENT
  Age: 55 Year
  Sex: Male

DRUGS (2)
  1. ENBREL [Suspect]
     Active Substance: ETANERCEPT
     Indication: OSTEOPOROSIS
     Dosage: UNK
     Route: 065
  2. ENBREL [Suspect]
     Active Substance: ETANERCEPT
     Indication: RHEUMATOID ARTHRITIS
     Dosage: UNK
     Route: 065
     Dates: start: 201801

REACTIONS (8)
  - Off label use [Unknown]
  - Ocular discomfort [Unknown]
  - Wrong technique in product usage process [Unknown]
  - Injection site haemorrhage [Unknown]
  - Paraesthesia [Unknown]
  - Injection site pain [Unknown]
  - Fear of injection [Unknown]
  - Underdose [Unknown]

NARRATIVE: CASE EVENT DATE: 201801
